FAERS Safety Report 6371945-0 (Version None)
Quarter: 2009Q3

REPORT INFORMATION
  Report Type: 
  Country: None (occurrence: None)
  Receive Date: 20090923
  Receipt Date: 20090911
  Transmission Date: 20100115
  Serious: Yes (Death)
  Sender: FDA-Public Use
  Company Number: US-ELI_LILLY_AND_COMPANY-US200909002816

PATIENT
  Age: 3 Week

DRUGS (1)
  1. FLUOXETINE HCL [Suspect]
     Dosage: UNK, UNKNOWN
     Route: 063

REACTIONS (2)
  - DRUG EXPOSURE VIA BREAST MILK [None]
  - SUDDEN INFANT DEATH SYNDROME [None]
